FAERS Safety Report 9778259 (Version 2)
Quarter: 2014Q1

REPORT INFORMATION
  Report Type: Report from Study
  Country: US (occurrence: US)
  Receive Date: 20131223
  Receipt Date: 20140121
  Transmission Date: 20141002
  Serious: Yes (Death)
  Sender: FDA-Public Use
  Company Number: US-US-EMD SERONO, INC.-7259057

PATIENT
  Sex: Female

DRUGS (1)
  1. REBIF [Suspect]
     Indication: MULTIPLE SCLEROSIS

REACTIONS (6)
  - Cardio-respiratory arrest [Fatal]
  - Myocardial infarction [Fatal]
  - Arrhythmia [Fatal]
  - Multiple sclerosis [Fatal]
  - Cervicogenic headache [Unknown]
  - Weight decreased [Unknown]
